FAERS Safety Report 4821321-4 (Version None)
Quarter: 2005Q4

REPORT INFORMATION
  Report Type: 
  Country: None (occurrence: None)
  Receive Date: 20051107
  Receipt Date: 20050812
  Transmission Date: 20060501
  Serious: Yes (Other)
  Sender: FDA-Public Use
  Company Number: US-GLAXOSMITHKLINE-A0570057A

PATIENT
  Sex: Male

DRUGS (1)
  1. AVANDAMET [Suspect]
     Route: 048

REACTIONS (1)
  - ANAEMIA [None]
